FAERS Safety Report 24414827 (Version 1)
Quarter: 2024Q4

REPORT INFORMATION
  Report Type: Spontaneous
  Country: NO (occurrence: NO)
  Receive Date: 20241009
  Receipt Date: 20241009
  Transmission Date: 20250115
  Serious: Yes (Other)
  Sender: AUROBINDO
  Company Number: NO-NOMAADVRE-PASRAPP-2024-V4z38g

PATIENT
  Age: 50 Year
  Sex: Female

DRUGS (3)
  1. NAPROXEN [Suspect]
     Active Substance: NAPROXEN
     Indication: Pain
     Dosage: UNK UNK, TWO TIMES A DAY (MILLIGRAM)
     Route: 048
     Dates: start: 20240823, end: 20240901
  2. Paralgin forte [Concomitant]
     Indication: Pain
     Dosage: UNK UNK, AS NECESSARY AT EVENING (ONLY USED WHEN PAIN PREVENTS SLEEP)
     Route: 065
     Dates: start: 20240823
  3. CREON [Concomitant]
     Active Substance: PANCRELIPASE AMYLASE\PANCRELIPASE LIPASE\PANCRELIPASE PROTEASE
     Indication: Enzyme supplementation
     Dosage: UNK (2-4 TABLETS WITH A MEAL)
     Route: 065

REACTIONS (3)
  - Haematochezia [Recovering/Resolving]
  - Abdominal pain [Recovered/Resolved]
  - Abdominal distension [Recovered/Resolved]

NARRATIVE: CASE EVENT DATE: 20240828
